FAERS Safety Report 5924891-8 (Version None)
Quarter: 2008Q4

REPORT INFORMATION
  Report Type: 
  Country: None (occurrence: None)
  Receive Date: 20081017
  Receipt Date: 20081017
  Transmission Date: 20090506
  Serious: No
  Sender: FDA-Public Use
  Company Number: None

PATIENT
  Sex: Female
  Weight: 63.05 kg

DRUGS (2)
  1. LUPRON [Suspect]
     Indication: ENDOMETRIOSIS
     Dosage: 1 SHOT PER MONTH/ 6MTHS
     Dates: start: 20000301, end: 20000831
  2. LUPRON [Suspect]
     Indication: ENDOMETRIOSIS
     Dosage: 1 SHOT PER MONTH/ 6MTHS
     Dates: start: 20010201, end: 20010429

REACTIONS (6)
  - DEPRESSION [None]
  - GAIT DISTURBANCE [None]
  - MEMORY IMPAIRMENT [None]
  - MIGRAINE [None]
  - PAIN IN EXTREMITY [None]
  - SPEECH DISORDER [None]
